FAERS Safety Report 9165611 (Version 1)
Quarter: 2013Q1

REPORT INFORMATION
  Report Type: Spontaneous
  Country: US (occurrence: US)
  Receive Date: 20130315
  Receipt Date: 20130315
  Transmission Date: 20140127
  Serious: No
  Sender: FDA-Public Use
  Company Number: US-PFIZER INC-2013085578

PATIENT
  Age: 44 Year
  Sex: Female
  Weight: 117.91 kg

DRUGS (6)
  1. CELEBREX [Suspect]
     Indication: PAIN
     Dosage: 200 MG, 2X/DAY
     Route: 048
  2. CELEBREX [Suspect]
     Dosage: 200 MG, 2X/DAY
     Route: 048
  3. CYMBALTA [Suspect]
     Dosage: 60 MG, 1X/DAY
     Route: 048
  4. CYMBALTA [Suspect]
     Dosage: 60 MG, 1X/DAY
     Route: 048
  5. NUVIGIL [Concomitant]
     Indication: SLEEP DISORDER
     Dosage: 250 MG, 1X/DAY
  6. BACLOFEN [Concomitant]
     Dosage: UNK

REACTIONS (1)
  - Stomatitis [Not Recovered/Not Resolved]
